FAERS Safety Report 5261096-0 (Version None)
Quarter: 2007Q1

REPORT INFORMATION
  Report Type: 
  Country: None (occurrence: None)
  Receive Date: 20070309
  Receipt Date: 20070301
  Transmission Date: 20070707
  Serious: Yes (Hospitalization, Disabling)
  Sender: FDA-Public Use
  Company Number: US-ELI_LILLY_AND_COMPANY-US200703000248

PATIENT
  Sex: Male

DRUGS (4)
  1. HUMALOG [Suspect]
     Indication: DIABETES MELLITUS
     Dosage: UNK, 4/D
     Dates: start: 20020101
  2. HUMALOG [Suspect]
     Dosage: UNK, 4/D
     Dates: start: 20020101
  3. LANTUS [Concomitant]
     Indication: DIABETES MELLITUS
     Dosage: UNK, UNKNOWN
  4. NORVASC [Concomitant]
     Dosage: UNK, UNKNOWN

REACTIONS (4)
  - BLOOD GLUCOSE INCREASED [None]
  - CARPAL TUNNEL SYNDROME [None]
  - OEDEMA PERIPHERAL [None]
  - PAIN [None]
